FAERS Safety Report 4375044-9 (Version None)
Quarter: 2004Q2

REPORT INFORMATION
  Report Type: 
  Country: None (occurrence: None)
  Receive Date: 20040603
  Receipt Date: 20040525
  Transmission Date: 20050107
  Serious: Yes (Other)
  Sender: FDA-Public Use
  Company Number: 2004035320

PATIENT
  Age: 51 Year
  Sex: Male

DRUGS (1)
  1. MINOXIDIL [Suspect]
     Dosage: 1 ML BID, TOPICAL
     Route: 061
     Dates: start: 20040101

REACTIONS (5)
  - ALLERGIC GRANULOMATOUS ANGIITIS [None]
  - APPLICATION SITE PRURITUS [None]
  - DISEASE RECURRENCE [None]
  - DYSPNOEA EXERTIONAL [None]
  - OXYGEN SATURATION DECREASED [None]
